FAERS Safety Report 10470363 (Version 3)
Quarter: 2015Q2

REPORT INFORMATION
  Report Type: Spontaneous
  Country: US (occurrence: US)
  Receive Date: 20140923
  Receipt Date: 20150527
  Transmission Date: 20150821
  Serious: Yes (Hospitalization)
  Sender: FDA-Public Use
  Company Number: US-BAYER-2014-140525

PATIENT
  Age: 36 Year
  Sex: Female
  Weight: 79 kg

DRUGS (3)
  1. ATIVAN [Concomitant]
     Active Substance: LORAZEPAM
     Dosage: 0.5 MG, UNK
  2. MIRENA [Suspect]
     Active Substance: LEVONORGESTREL
     Indication: CONTRACEPTION
     Dosage: 20 MCG/24HR, CONT
     Route: 015
     Dates: start: 20071022, end: 20130326
  3. RISPERDAL [Concomitant]
     Active Substance: RISPERIDONE

REACTIONS (13)
  - Device dislocation [None]
  - Abdominal adhesions [None]
  - Device issue [None]
  - Infection [None]
  - Emotional distress [None]
  - Uterine perforation [None]
  - Depression [None]
  - Device difficult to use [None]
  - Device misuse [None]
  - Injury [None]
  - Anxiety [None]
  - Peritoneal adhesions [None]
  - Abdominal pain [None]

NARRATIVE: CASE EVENT DATE: 200801
